FAERS Safety Report 14789601 (Version 1)
Quarter: 2018Q2

REPORT INFORMATION
  Report Type: Spontaneous
  Country: US (occurrence: US)
  Receive Date: 20180423
  Receipt Date: 20180423
  Transmission Date: 20180711
  Serious: No
  Sender: FDA-Public Use
  Company Number: US-TEVA-754773ACC

PATIENT
  Sex: Female

DRUGS (2)
  1. OMEGA-3-ACID ETHYL ESTERS CAPSULES, USP ONE GRAM CAPSULE [Suspect]
     Active Substance: OMEGA-3-ACID ETHYL ESTERS
     Indication: BLOOD CHOLESTEROL
     Route: 065
     Dates: start: 2016
  2. OMEGA-3-ACID ETHYL ESTERS CAPSULES, USP ONE GRAM CAPSULE [Suspect]
     Active Substance: OMEGA-3-ACID ETHYL ESTERS
     Route: 065

REACTIONS (2)
  - Eructation [Recovered/Resolved]
  - Product storage error [Unknown]
